FAERS Safety Report 12117770 (Version 5)
Quarter: 2016Q2

REPORT INFORMATION
  Report Type: Report from Study
  Country: AU (occurrence: AU)
  Receive Date: 20160226
  Receipt Date: 20160511
  Transmission Date: 20160815
  Serious: Yes (Hospitalization)
  Sender: FDA-Public Use
  Company Number: AU-ROCHE-1715002

PATIENT
  Age: 70 Year
  Sex: Female
  Weight: 79 kg

DRUGS (19)
  1. THYROXINE [Concomitant]
     Active Substance: LEVOTHYROXINE
     Indication: HYPOTHYROIDISM
     Route: 048
     Dates: start: 201511
  2. SELENIUM [Concomitant]
     Active Substance: SELENIUM
     Dosage: INDICATION: WELL BEING
     Route: 048
     Dates: start: 2010, end: 20160217
  3. BILBERRY [Concomitant]
     Active Substance: BILBERRY
     Dosage: INDICATION: WELL BEING
     Route: 048
     Dates: end: 20160217
  4. FOLIC ACID. [Concomitant]
     Active Substance: FOLIC ACID
     Route: 048
  5. FLAXSEED [Concomitant]
     Active Substance: FLAX SEED
     Dosage: INDICATION: WELL BEING
     Route: 048
     Dates: end: 20160217
  6. PHENERGAN [Concomitant]
     Active Substance: PROMETHAZINE HYDROCHLORIDE
     Route: 042
     Dates: start: 20160217
  7. FOLATE [Concomitant]
     Active Substance: FOLATE SODIUM
     Route: 048
     Dates: start: 20160101
  8. OBINUTUZUMAB [Suspect]
     Active Substance: OBINUTUZUMAB
     Indication: CHRONIC LYMPHOCYTIC LEUKAEMIA
     Dosage: DATE OF MOST RECENT DOSE 900 MG OF OBINUTUZUMAB PRIOR TO AE ONSET WAS ON 18/FEB/2016 AT 09:35
     Route: 042
     Dates: start: 20160217
  9. CHLORAMBUCIL [Suspect]
     Active Substance: CHLORAMBUCIL
     Indication: CHRONIC LYMPHOCYTIC LEUKAEMIA
     Dosage: DATE OF MOST RECENT DOSE 38 MG OF CHLORAMBUCIL PRIOR TO AE ONSET WAS ON 17/FEB/2016 (START TIME WAS
     Route: 048
     Dates: start: 20160217
  10. KYOLIC [Concomitant]
     Dosage: INDICATION: WELL BEING
     Route: 048
     Dates: start: 2012, end: 20160217
  11. ASMOL (AUSTRALIA) [Concomitant]
     Indication: ASTHMA
     Route: 048
     Dates: start: 201507
  12. CALTRATE [Concomitant]
     Active Substance: CALCIUM CARBONATE
     Dosage: INDICATION: WELL BEING
     Route: 048
     Dates: start: 2015
  13. SYMBICORT [Concomitant]
     Active Substance: BUDESONIDE\FORMOTEROL FUMARATE DIHYDRATE
     Indication: ASTHMA
     Route: 048
     Dates: start: 201501
  14. NASONEX [Concomitant]
     Active Substance: MOMETASONE FUROATE
     Indication: UPPER-AIRWAY COUGH SYNDROME
     Route: 048
     Dates: start: 20160107
  15. METHYLPREDNISOLONE. [Concomitant]
     Active Substance: METHYLPREDNISOLONE
     Route: 042
     Dates: start: 20160217
  16. VENTOLIN [Concomitant]
     Active Substance: ALBUTEROL SULFATE
     Indication: ASTHMA
     Dosage: IH (INHALED)
     Route: 065
     Dates: start: 20160217
  17. ALLOPURINOL. [Concomitant]
     Active Substance: ALLOPURINOL
     Dosage: INDICATION: TLS PROTECTION
     Route: 048
     Dates: start: 20160213
  18. LORATADINE. [Concomitant]
     Active Substance: LORATADINE
     Route: 048
     Dates: start: 20160217
  19. FISH OIL [Concomitant]
     Active Substance: FISH OIL
     Dosage: INDICATION: WELL BEING
     Route: 048
     Dates: end: 20160217

REACTIONS (1)
  - Splenic infarction [Recovered/Resolved]

NARRATIVE: CASE EVENT DATE: 20160219
